FAERS Safety Report 4897654-2 (Version None)
Quarter: 2006Q1

REPORT INFORMATION
  Report Type: 
  Country: None (occurrence: None)
  Receive Date: 20060130
  Receipt Date: 20060130
  Transmission Date: 20060701
  Serious: Yes (Other)
  Sender: FDA-Public Use
  Company Number: None

PATIENT
  Age: 81 Year
  Sex: Male
  Weight: 97.5 kg

DRUGS (8)
  1. HYTRIN [Suspect]
  2. OMEPRAZOLE [Concomitant]
  3. LOPERAMIDE HCL [Concomitant]
  4. MYCOPHENOLATE MOFETIL [Concomitant]
  5. PYRIDOSTIGMINE BROMIDE [Concomitant]
  6. PREDNISONE [Concomitant]
  7. TERAZOSIN HCL [Concomitant]
  8. MELOXICAM [Concomitant]

REACTIONS (1)
  - HYPOTENSION [None]
